FAERS Safety Report 8914116 (Version 1)
Quarter: 2012Q4

REPORT INFORMATION
  Report Type: 
  Country: US (occurrence: US)
  Receive Date: 20121119
  Receipt Date: 20121119
  Transmission Date: 20130627
  Serious: Yes (Hospitalization)
  Sender: FDA-Public Use
  Company Number: US-BAYER-2012-118560

PATIENT
  Age: 23 Year
  Sex: Female
  Weight: 63.64 kg

DRUGS (3)
  1. YAZ [Suspect]
     Indication: OVARIAN CYST
  2. YASMIN [Suspect]
  3. XANAX [Concomitant]
     Indication: SLEEP DISORDER

REACTIONS (3)
  - Off label use [None]
  - Deep vein thrombosis [None]
  - Pulmonary embolism [None]
